FAERS Safety Report 9407762 (Version 2)
Quarter: 2013Q3

REPORT INFORMATION
  Report Type: Report from Study
  Country: US (occurrence: US)
  Receive Date: 20130718
  Receipt Date: 20130905
  Transmission Date: 20140515
  Serious: Yes (Death)
  Sender: FDA-Public Use
  Company Number: US-ACTELION-A-US2013-84072

PATIENT
  Age: 55 Year
  Sex: Male

DRUGS (1)
  1. TRACLEER [Suspect]
     Indication: PULMONARY ARTERIAL HYPERTENSION
     Dosage: UNK
     Route: 048
     Dates: end: 20130529

REACTIONS (4)
  - Respiratory failure [Fatal]
  - Interstitial lung disease [Fatal]
  - Pulmonary arterial hypertension [Unknown]
  - Cough [Unknown]
